FAERS Safety Report 6198479-0 (Version None)
Quarter: 2009Q2

REPORT INFORMATION
  Report Type: 
  Country: None (occurrence: None)
  Receive Date: 20090521
  Receipt Date: 20090511
  Transmission Date: 20091009
  Serious: Yes (Other)
  Sender: FDA-Public Use
  Company Number: PHHY2009DE04417

PATIENT
  Sex: Male

DRUGS (3)
  1. MYFORTIC [Suspect]
     Indication: MYASTHENIA GRAVIS
     Dosage: 1440 MG/DAILY
     Route: 048
     Dates: start: 20020101
  2. CELLCEPT [Suspect]
     Indication: MYASTHENIA GRAVIS
     Dosage: UNK
     Dates: end: 20020101
  3. EYE DROPS [Concomitant]
     Dosage: UNK

REACTIONS (6)
  - ABNORMAL SENSATION IN EYE [None]
  - CATARACT OPERATION [None]
  - DIARRHOEA [None]
  - FLATULENCE [None]
  - GASTROINTESTINAL DISORDER [None]
  - INTRAOCULAR PRESSURE INCREASED [None]
